FAERS Safety Report 11561072 (Version 1)
Quarter: 2015Q3

REPORT INFORMATION
  Report Type: Spontaneous
  Country: US (occurrence: US)
  Receive Date: 20150916
  Receipt Date: 20150916
  Transmission Date: 20151125
  Serious: No
  Sender: FDA-Public Use
  Company Number: US-ELI_LILLY_AND_COMPANY-US200810004611

PATIENT
  Sex: Female

DRUGS (22)
  1. LEVAQUIN [Concomitant]
     Active Substance: LEVOFLOXACIN
  2. ATENOLOL. [Concomitant]
     Active Substance: ATENOLOL
  3. VITAMIN B12 [Concomitant]
     Active Substance: CYANOCOBALAMIN
  4. DYAZIDE [Concomitant]
     Active Substance: HYDROCHLOROTHIAZIDE\TRIAMTERENE
  5. MIRALAX [Concomitant]
     Active Substance: POLYETHYLENE GLYCOL 3350
  6. POTASSIUM [Concomitant]
     Active Substance: POTASSIUM
  7. DARVOCET [Concomitant]
     Active Substance: ACETAMINOPHEN\PROPOXYPHENE HYDROCHLORIDE
  8. AVAPRO [Concomitant]
     Active Substance: IRBESARTAN
  9. CALTRATE [Concomitant]
     Active Substance: CALCIUM CARBONATE
  10. SINGULAIR [Concomitant]
     Active Substance: MONTELUKAST SODIUM
  11. ANTIHISTAMINES [Concomitant]
     Active Substance: ANTIHISTAMINES NOS
  12. ALBUTEROL. [Concomitant]
     Active Substance: ALBUTEROL
  13. FORTEO [Suspect]
     Active Substance: TERIPARATIDE
     Dosage: 20 UG, DAILY (1/D)
     Dates: start: 200708
  14. ADVAIR HFA [Concomitant]
     Active Substance: FLUTICASONE PROPIONATE\SALMETEROL XINAFOATE
  15. ANTIVERT [Concomitant]
     Active Substance: MECLIZINE HYDROCHLORIDE
  16. LORTAB [Concomitant]
     Active Substance: ACETAMINOPHEN\HYDROCODONE BITARTRATE
  17. RHINOCORT [Concomitant]
     Active Substance: BUDESONIDE
  18. PRILOSEC [Concomitant]
     Active Substance: OMEPRAZOLE MAGNESIUM
  19. RELAFEN [Concomitant]
     Active Substance: NABUMETONE
  20. RAMIPRIL. [Concomitant]
     Active Substance: RAMIPRIL
  21. ASPIRIN. [Concomitant]
     Active Substance: ASPIRIN
  22. VALIUM [Concomitant]
     Active Substance: DIAZEPAM

REACTIONS (2)
  - Glaucoma [Unknown]
  - Bone density decreased [Unknown]

NARRATIVE: CASE EVENT DATE: 200808
